FAERS Safety Report 6083522-X (Version None)
Quarter: 2009Q1

REPORT INFORMATION
  Report Type: 
  Country: None (occurrence: None)
  Receive Date: 20090219
  Receipt Date: 20090206
  Transmission Date: 20090719
  Serious: Yes (Hospitalization, Other)
  Sender: FDA-Public Use
  Company Number: US-ROCHE-613546

PATIENT
  Sex: Female

DRUGS (6)
  1. PEG-INTERFERON A-2A (RO 25-8310) [Suspect]
     Indication: HEPATITIS C
     Dosage: FORM: PRE-FILLED SYRINGE
     Route: 065
     Dates: start: 20090107, end: 20090119
  2. RIBAVIRIN [Suspect]
     Indication: HEPATITIS C
     Route: 065
     Dates: start: 20090107, end: 20090119
  3. MECLIZINE [Suspect]
     Route: 065
  4. TRAMADOL HCL [Suspect]
     Indication: BACK PAIN
     Route: 065
  5. LEXAPRO [Suspect]
     Indication: DEPRESSION
     Route: 065
  6. TRAZODONE HCL [Suspect]
     Indication: DEPRESSION
     Route: 065

REACTIONS (4)
  - ANAEMIA [None]
  - BLADDER NEOPLASM [None]
  - DYSTONIA [None]
  - HYPERSENSITIVITY [None]
